FAERS Safety Report 19587387 (Version 1)
Quarter: 2021Q3

REPORT INFORMATION
  Report Type: Spontaneous
  Country: FR (occurrence: FR)
  Receive Date: 20210721
  Receipt Date: 20210721
  Transmission Date: 20211014
  Serious: Yes (Hospitalization)
  Sender: FDA-Public Use
  Company Number: FR-SA-2021SA216394

PATIENT
  Age: 47 Year
  Sex: Male

DRUGS (6)
  1. ISONIAZID. [Suspect]
     Active Substance: ISONIAZID
     Indication: TUBERCULOSIS
     Dosage: 300 MG
  2. RIFATER [Suspect]
     Active Substance: ISONIAZID\PYRAZINAMIDE\RIFAMPIN
     Indication: TUBERCULOSIS
     Dosage: 200 MG (RIFAMPICIN 120 MG, ISONIAZID 50 MG AND PYRAZINAMIDE 30 MG ) 5 TABLETS
  3. ISONIAZID. [Suspect]
     Active Substance: ISONIAZID
     Dosage: ORAL PROVOCATION TEST WITH ISONIAZID
  4. PYRAZINAMIDE. [Suspect]
     Active Substance: PYRAZINAMIDE
     Indication: TUBERCULOSIS
     Dosage: 1500 MG
  5. ETHAMBUTOL [Concomitant]
     Active Substance: ETHAMBUTOL HYDROCHLORIDE
     Indication: TUBERCULOSIS
     Dosage: 1200 MG
     Dates: start: 200112
  6. PYRAZINAMIDE. [Suspect]
     Active Substance: PYRAZINAMIDE
     Dosage: ORAL PROVOCATION TEST WITH PYRAZINAMIDE

REACTIONS (7)
  - Urticaria [Recovered/Resolved]
  - Rash maculo-papular [Recovered/Resolved]
  - Presyncope [Recovered/Resolved]
  - Hypotension [Recovered/Resolved]
  - Bradycardia [Recovered/Resolved]
  - Drug hypersensitivity [Recovered/Resolved]
  - Burning sensation [Recovered/Resolved]
